FAERS Safety Report 17861702 (Version 1)
Quarter: 2020Q2

REPORT INFORMATION
  Report Type: Spontaneous
  Country: GB (occurrence: GB)
  Receive Date: 20200604
  Receipt Date: 20200604
  Transmission Date: 20200714
  Serious: Yes (Life-Threatening)
  Sender: FDA-Public Use
  Company Number: GB-TEVA-2020-GB-1243386

PATIENT
  Age: 70 Year
  Sex: Female
  Weight: 56 kg

DRUGS (27)
  1. QUININE [Concomitant]
     Active Substance: QUININE
     Dosage: 1 DOSAGE FORMS DAILY; TO BE TAKEN AT NIGHT,
     Dates: start: 20170725
  2. AMITRIPTYLINE HYDROCHLORIDE. [Concomitant]
     Active Substance: AMITRIPTYLINE HYDROCHLORIDE
     Dosage: 4 DOSAGE FORMS DAILY; TAKE AT NIGHT,
     Dates: start: 20180326
  3. LANSOPRAZOLE. [Concomitant]
     Active Substance: LANSOPRAZOLE
     Dosage: 1 DOSAGE FORM
     Dates: start: 20170725
  4. PARACETAMOL [Concomitant]
     Active Substance: ACETAMINOPHEN
     Dosage: ONE OR TWO TO BE TAKEN FOUR TIMES A DAY - 1 MNT...,
     Dates: start: 20170725
  5. DERMOVATE [Concomitant]
     Active Substance: CLOBETASOL
     Dosage: APPLY AS PER DERMATOLOGY, 2 DOSAGE FORM
     Dates: start: 20191213
  6. OILATUM [Concomitant]
     Dosage: AS DIRECTED USE AS SOAP SUBSTITUTE INSTEAD OF H...
     Dates: start: 20171129, end: 20200311
  7. MACROGOL [Concomitant]
     Active Substance: POLYETHYLENE GLYCOLS
     Dosage: 1 DOSAGE FORMS DAILY; ONE DAILY
     Dates: start: 20190218
  8. ACIDEX [Concomitant]
     Active Substance: CALCIUM CARBONATE\SODIUM ALGINATE\SODIUM BICARBONATE
     Dosage: SPOON, 40 ML
     Dates: start: 20180206, end: 20200311
  9. NUTRITIONAL SUPPLEMENT [Concomitant]
     Active Substance: DIETARY SUPPLEMENT
     Dosage: USE AS DIRECTED
     Dates: start: 20180608
  10. HUMALOG [Concomitant]
     Active Substance: INSULIN LISPRO
     Dosage: SHORTLY BEFORE MEAL...
     Route: 058
     Dates: start: 20170725, end: 20200311
  11. EVACAL D3 CHEWABLE [Concomitant]
     Dosage: 2 DOSAGE FORM
     Dates: start: 20191116
  12. CLOPIDOGREL [Concomitant]
     Active Substance: CLOPIDOGREL BISULFATE
     Dosage: 1 DOSAGE FORM
     Dates: start: 20180412
  13. GLUCOSE [Concomitant]
     Active Substance: DEXTROSE
     Dosage: USE AS DIRECTED
     Dates: start: 20190123
  14. ATORVASTATIN [Concomitant]
     Active Substance: ATORVASTATIN
     Indication: BLOOD CHOLESTEROL ABNORMAL
     Dosage: 1 DOSAGE FORM
     Dates: start: 20180412
  15. TRESIBA [Concomitant]
     Active Substance: INSULIN DEGLUDEC
     Dosage: USE (INSTEAD OF LEVEMIR - STOPE..., 1 DOSAGE FORM
     Dates: start: 20190604
  16. PROLIA [Concomitant]
     Active Substance: DENOSUMAB
     Dosage: TO BE ADMINISTERED, 1 DOSAGE FORM
     Route: 058
     Dates: start: 20191116
  17. CETRABEN EMOLLIENT CREAM [Concomitant]
     Dosage: USE AS REGULAR MOISTURISER AS PER DERMATOLOGY
     Dates: start: 20191213
  18. CREON [Concomitant]
     Active Substance: PANCRELIPASE AMYLASE\PANCRELIPASE LIPASE\PANCRELIPASE PROTEASE
     Dosage: 2-3 WITH MAIN MEALS AND ONE WITH...
     Dates: start: 20170725
  19. DIHYDROCODEINE [Concomitant]
     Active Substance: DIHYDROCODEINE
     Dosage: TAKE MAXIUMUM OF 10 DAILY
     Dates: start: 20181025
  20. CLARITHROMYCIN. [Suspect]
     Active Substance: CLARITHROMYCIN
     Dosage: - REVIEWED ONCE AF..., 2000 MG
     Dates: start: 20200424
  21. FLUOXETINE [Concomitant]
     Active Substance: FLUOXETINE HYDROCHLORIDE
     Dosage: 80 MILLIGRAM DAILY; TAKE IN THE MORNING,
     Dates: start: 20170725
  22. ZOPICLONE [Concomitant]
     Active Substance: ZOPICLONE
     Dosage: 1 DOSAGE FORMS DAILY; TO BE TAKEN AT NIGHT,
     Dates: start: 20180326
  23. FLUCLOXACILLIN [Concomitant]
     Active Substance: FLUCLOXACILLIN
     Dosage: 4 DOSAGE FORM
     Dates: start: 20200430, end: 20200507
  24. VAGIFEM [Concomitant]
     Active Substance: ESTRADIOL
     Dosage: 1 DOSAGE FORMS DAILY; FOR 2 WEEKS INSERTED TO VAGINA AT NIGHT...,
     Dates: start: 20170725, end: 20200311
  25. ORAMORPH [Concomitant]
     Active Substance: MORPHINE SULFATE
     Dosage: ONCE DAILY, SHOULD LAST ..., 2.5 ML
     Dates: start: 20190610
  26. SOLIFENACIN [Concomitant]
     Active Substance: SOLIFENACIN
     Dosage: 1 DOSAGE FORM
     Dates: start: 20170725
  27. CLOTRIMAZOLE. [Concomitant]
     Active Substance: CLOTRIMAZOLE
     Dosage: APPLY TO THE AFFECTED AREA(S) TWO TO THREE TIME...
     Dates: start: 20191213

REACTIONS (1)
  - Malaise [Recovered/Resolved]

NARRATIVE: CASE EVENT DATE: 20200507
